FAERS Safety Report 6772282-2 (Version None)
Quarter: 2010Q2

REPORT INFORMATION
  Report Type: 
  Country: None (occurrence: None)
  Receive Date: 20100616
  Receipt Date: 20090710
  Transmission Date: 20101027
  Serious: No
  Sender: FDA-Public Use
  Company Number: US-ASTRAZENECA-2009UW14834

PATIENT
  Sex: Male

DRUGS (1)
  1. PULMICORT FLEXHALER [Suspect]
     Dosage: 1 PUFF
     Route: 055
     Dates: start: 20050101

REACTIONS (2)
  - DRUG INEFFECTIVE [None]
  - WHEEZING [None]
